FAERS Safety Report 8547904-6 (Version None)
Quarter: 2012Q3

REPORT INFORMATION
  Report Type: 
  Country: None (occurrence: None)
  Receive Date: 20120728
  Receipt Date: 20120720
  Transmission Date: 20120928
  Serious: Yes (Other)
  Sender: FDA-Public Use
  Company Number: US-009507513-1207USA009064

PATIENT

DRUGS (2)
  1. REBETOL [Suspect]
     Indication: HEPATITIS C
     Dosage: UNK
     Dates: start: 20060602, end: 20071207
  2. PEGASYS [Concomitant]
     Indication: HEPATITIS C
     Dosage: UNK
     Dates: start: 20060602, end: 20071207

REACTIONS (6)
  - CONFUSIONAL STATE [None]
  - APATHY [None]
  - HEPATITIS C [None]
  - MEMORY IMPAIRMENT [None]
  - AGGRESSION [None]
  - DEPRESSION [None]
